FAERS Safety Report 18777721 (Version 2)
Quarter: 2021Q1

REPORT INFORMATION
  Report Type: Spontaneous
  Country: US (occurrence: US)
  Receive Date: 20210122
  Receipt Date: 20210204
  Transmission Date: 20210419
  Serious: No
  Sender: FDA-Public Use
  Company Number: US-PFIZER INC-2021059376

PATIENT
  Age: 65 Year
  Sex: Female
  Weight: 109 kg

DRUGS (6)
  1. MELOXICAM. [Concomitant]
     Active Substance: MELOXICAM
     Indication: PAIN
     Dosage: UNK
  2. SERTRALINE HCL [Suspect]
     Active Substance: SERTRALINE HYDROCHLORIDE
     Indication: DEPRESSION
     Dosage: UNK
  3. GLATIRAMER ACETATE. [Suspect]
     Active Substance: GLATIRAMER ACETATE
     Dosage: 40 MG, 3X/DAY
  4. MAGNESIUM [Concomitant]
     Active Substance: MAGNESIUM
     Dosage: UNK
  5. ELDERBERRY [Concomitant]
     Active Substance: HERBALS
     Dosage: UNK
  6. MELOXICAM. [Concomitant]
     Active Substance: MELOXICAM
     Indication: MULTIPLE SCLEROSIS

REACTIONS (4)
  - Fatigue [Recovered/Resolved]
  - Arthralgia [Recovering/Resolving]
  - Personality disorder [Recovered/Resolved]
  - Pain in extremity [Recovering/Resolving]
